FAERS Safety Report 10998691 (Version 1)
Quarter: 2015Q2

REPORT INFORMATION
  Report Type: Spontaneous
  Country: US (occurrence: US)
  Receive Date: 20150408
  Receipt Date: 20150408
  Transmission Date: 20150821
  Serious: Yes (Life-Threatening, Hospitalization, Other)
  Sender: FDA-Public Use
  Company Number: US-ACTAVIS-2015-07743

PATIENT
  Age: 30 Year
  Sex: Female

DRUGS (1)
  1. LEVOFLOXACIN (WATSON LABORATORIES) [Suspect]
     Active Substance: LEVOFLOXACIN
     Indication: PRODUCT USED FOR UNKNOWN INDICATION
     Dosage: UNK
     Route: 065

REACTIONS (5)
  - Vanishing bile duct syndrome [Recovered/Resolved]
  - Hepatic failure [Recovered/Resolved]
  - Liver transplant [Recovered/Resolved]
  - Stevens-Johnson syndrome [Unknown]
  - Vaginal haemorrhage [Unknown]
